FAERS Safety Report 21023631 (Version 2)
Quarter: 2022Q3

REPORT INFORMATION
  Report Type: Spontaneous
  Country: JP (occurrence: JP)
  Receive Date: 20220629
  Receipt Date: 20220707
  Transmission Date: 20221026
  Serious: Yes (Hospitalization)
  Sender: FDA-Public Use
  Company Number: JP-DSJP-DSJ-2022-122656AA

PATIENT
  Age: 90 Year

DRUGS (1)
  1. EDOXABAN TOSYLATE [Suspect]
     Active Substance: EDOXABAN TOSYLATE
     Indication: Atrial fibrillation
     Dosage: 15MG/DAY
     Route: 065

REACTIONS (2)
  - Melaena [Recovering/Resolving]
  - Cerebral infarction [Recovering/Resolving]
